FAERS Safety Report 17346319 (Version 1)
Quarter: 2020Q1

REPORT INFORMATION
  Report Type: Report from Study
  Country: US (occurrence: US)
  Receive Date: 20200129
  Receipt Date: 20200129
  Transmission Date: 20200409
  Serious: No
  Sender: FDA-Public Use
  Company Number: US-EXELIXIS-CABO-19022676

PATIENT
  Sex: Male
  Weight: 84.81 kg

DRUGS (7)
  1. ALEVE [Concomitant]
     Active Substance: NAPROXEN SODIUM
  2. SPIRONOLACTONE. [Concomitant]
     Active Substance: SPIRONOLACTONE
  3. CABOMETYX [Suspect]
     Active Substance: CABOZANTINIB S-MALATE
     Indication: BLADDER CANCER
     Dosage: 60 MG, QD
     Route: 048
  4. POTASSIUM [Concomitant]
     Active Substance: POTASSIUM
  5. VASELINE PURE [Concomitant]
     Active Substance: PETROLATUM
  6. VITAMIN K [Concomitant]
     Active Substance: PHYTONADIONE
  7. FUROSEMIDE. [Concomitant]
     Active Substance: FUROSEMIDE

REACTIONS (2)
  - Haemorrhoidal haemorrhage [Unknown]
  - Off label use [Unknown]
